FAERS Safety Report 4411833-X (Version None)
Quarter: 2004Q3

REPORT INFORMATION
  Report Type: 
  Country: None (occurrence: None)
  Receive Date: 20040729
  Receipt Date: 20040729
  Transmission Date: 20050211
  Serious: Yes (Hospitalization)
  Sender: FDA-Public Use
  Company Number: None

PATIENT
  Age: 27 Year
  Sex: Female
  Weight: 77.1115 kg

DRUGS (1)
  1. DEPO-PROVERA SUSPENSION/INJ [Suspect]
     Dosage: ONE EVERY 3 MO FOR 1 YEAR
     Dates: start: 20011001, end: 20020501

REACTIONS (4)
  - BIPOLAR DISORDER [None]
  - ENDOMETRIOSIS [None]
  - HORMONE LEVEL ABNORMAL [None]
  - OVARIAN CYST [None]
